FAERS Safety Report 20745940 (Version 1)
Quarter: 2022Q2

REPORT INFORMATION
  Report Type: Spontaneous
  Country: US (occurrence: US)
  Receive Date: 20220425
  Receipt Date: 20220425
  Transmission Date: 20220720
  Serious: No
  Sender: FDA-Public Use
  Company Number: US-PFIZER INC-202200607532

PATIENT
  Age: 62 Year
  Sex: Female

DRUGS (2)
  1. XELJANZ XR [Suspect]
     Active Substance: TOFACITINIB CITRATE
     Dosage: 11 MG, DAILY
     Route: 048
     Dates: start: 2017
  2. XELJANZ XR [Suspect]
     Active Substance: TOFACITINIB CITRATE
     Dosage: 11 MG, ALTERNATE DAY (I WAS TAKING THE XELJANZ (XR) EVERY OTHER DAY AS WAS TOLD BY MY DOCTOR)
     Route: 048

REACTIONS (3)
  - Off label use [Not Recovered/Not Resolved]
  - Bronchitis [Not Recovered/Not Resolved]
  - Sinusitis [Not Recovered/Not Resolved]
